FAERS Safety Report 6531626-7 (Version None)
Quarter: 2010Q1

REPORT INFORMATION
  Report Type: 
  Country: None (occurrence: None)
  Receive Date: 20100108
  Receipt Date: 20091228
  Transmission Date: 20100710
  Serious: Yes (Death, Hospitalization)
  Sender: FDA-Public Use
  Company Number: FR-PFIZER INC-2009314680

PATIENT
  Age: 88 Year
  Sex: Female

DRUGS (8)
  1. ALDACTONE [Suspect]
     Dosage: 100 MG, 1X/DAY
     Route: 048
     Dates: start: 20090717, end: 20090810
  2. FUROSEMIDE [Concomitant]
     Dosage: 20 MG, 1X/DAY
     Route: 048
     Dates: end: 20090810
  3. BISOPROLOL [Concomitant]
     Dosage: 5 MG, 1X/DAY
     Route: 048
     Dates: end: 20090810
  4. DOMPERIDONE MALEATE [Concomitant]
     Dosage: 10 MG, 3X/DAY
     Route: 048
     Dates: end: 20090810
  5. NORSET [Concomitant]
     Dosage: 15 MG, 1X/DAY
     Route: 048
     Dates: end: 20090810
  6. MEPRONIZINE [Concomitant]
     Dosage: 1 DF, 1X/DAY
     Route: 048
     Dates: end: 20090810
  7. LEVOTHYROXINE SODIUM [Concomitant]
     Dosage: 50 UG, 1X/DAY
     Route: 048
     Dates: end: 20090810
  8. TRAMADOL [Concomitant]
     Dosage: 100 MG, 2X/DAY

REACTIONS (4)
  - GASTROINTESTINAL HAEMORRHAGE [None]
  - HYPERKALAEMIA [None]
  - HYPOTENSION [None]
  - RENAL FAILURE [None]
